FAERS Safety Report 8761345 (Version 1)
Quarter: 2012Q4

REPORT INFORMATION
  Report Type: 
  Country: US (occurrence: US)
  Receive Date: 20120830
  Receipt Date: 20120830
  Transmission Date: 20130627
  Serious: Yes (Other)
  Sender: FDA-Public Use
  Company Number: US-BAYER-2012-089598

PATIENT

DRUGS (1)
  1. ALEVE CAPLET/TABLET,MIDOL EXTENDED RELIEF CAPLET [Suspect]
     Indication: PLEURISY
     Dosage: 500 mg, BID
     Route: 048

REACTIONS (4)
  - Chest pain [None]
  - Dyspnoea [None]
  - Fatigue [None]
  - Unevaluable event [None]
